FAERS Safety Report 9600307 (Version 1)
Quarter: 2013Q4

REPORT INFORMATION
  Report Type: Spontaneous
  Country: US (occurrence: US)
  Receive Date: 20131004
  Receipt Date: 20131004
  Transmission Date: 20140711
  Serious: No
  Sender: FDA-Public Use
  Company Number: US-AMGEN-USASP2013033658

PATIENT
  Age: 65 Year
  Sex: Female

DRUGS (7)
  1. ENBREL [Suspect]
     Indication: PSORIASIS
     Dosage: UNK
     Route: 058
     Dates: start: 201209, end: 201211
  2. DIOVAN [Concomitant]
     Dosage: UNK
  3. ASA [Concomitant]
     Dosage: UNK
  4. SIMVASTATIN [Concomitant]
     Dosage: UNK
  5. OMEPRAZOLE [Concomitant]
     Dosage: UNK
  6. METFORMIN [Concomitant]
     Dosage: UNK
  7. MELOXICAM [Concomitant]
     Dosage: UNK

REACTIONS (1)
  - Extra dose administered [Unknown]
